FAERS Safety Report 8723772 (Version 2)
Quarter: 2013Q4

REPORT INFORMATION
  Report Type: Report from Study
  Country: US (occurrence: US)
  Receive Date: 20120815
  Receipt Date: 20131031
  Transmission Date: 20140711
  Serious: Yes (Other)
  Sender: FDA-Public Use
  Company Number: US-009507513-2012SP021670

PATIENT
  Sex: Female

DRUGS (3)
  1. PEGINTRON [Suspect]
     Indication: HEPATITIS C
     Dosage: UNK UNK, UNKNOWN
     Route: 065
     Dates: start: 20120224
  2. MK-8908 [Suspect]
     Indication: HEPATITIS C
     Dosage: UNK UNK, BID
     Route: 065
     Dates: start: 20120224
  3. MK-8908 [Suspect]
     Dosage: UNK UNK, QD
     Route: 065

REACTIONS (6)
  - Blood count abnormal [Unknown]
  - Food craving [Unknown]
  - Dizziness [Unknown]
  - Anaemia [Unknown]
  - White blood cell count decreased [Unknown]
  - Dehydration [Unknown]
